FAERS Safety Report 8508109-8 (Version None)
Quarter: 2012Q3

REPORT INFORMATION
  Report Type: 
  Country: None (occurrence: None)
  Receive Date: 20120713
  Receipt Date: 20120706
  Transmission Date: 20120928
  Serious: Yes (Other)
  Sender: FDA-Public Use
  Company Number: BR-ELI_LILLY_AND_COMPANY-BR201206009135

PATIENT
  Sex: Female
  Weight: 74 kg

DRUGS (3)
  1. HUMALOG MIX 50/50 [Suspect]
     Dosage: 41 IU, QD
     Route: 058
  2. HUMALOG MIX 50/50 [Suspect]
     Dosage: 42 IU, EACH EVENING
     Route: 058
  3. HUMALOG MIX 50/50 [Suspect]
     Indication: TYPE 2 DIABETES MELLITUS
     Dosage: 40 IU, EACH MORNING
     Route: 058

REACTIONS (3)
  - BLINDNESS [None]
  - DRUG DOSE OMISSION [None]
  - DEAFNESS [None]
